FAERS Safety Report 6271376-8 (Version None)
Quarter: 2009Q3

REPORT INFORMATION
  Report Type: 
  Country: None (occurrence: None)
  Receive Date: 20090717
  Receipt Date: 20090705
  Transmission Date: 20100115
  Serious: Yes (Life-Threatening, Hospitalization, Other)
  Sender: FDA-Public Use
  Company Number: QA-ROCHE-640050

PATIENT
  Sex: Male
  Weight: 90 kg

DRUGS (11)
  1. VALGANCICLOVIR HCL [Suspect]
     Route: 048
     Dates: start: 20090223, end: 20090316
  2. RITUXIMAB [Suspect]
     Indication: NON-HODGKIN'S LYMPHOMA
     Route: 042
     Dates: start: 20060902
  3. RITUXIMAB [Suspect]
     Route: 042
     Dates: start: 20070204
  4. RITUXIMAB [Suspect]
     Route: 042
     Dates: start: 20081020, end: 20090201
  5. FOSCARNET [Suspect]
     Route: 042
     Dates: start: 20090331, end: 20090406
  6. FLUDARABINE PHOSPHATE [Concomitant]
     Indication: NON-HODGKIN'S LYMPHOMA
     Dosage: FREQUENCY: DAILYX3Q3WKS.
     Route: 042
     Dates: start: 20081020, end: 20090204
  7. CYCLOPHOSPHAMIDE [Concomitant]
     Indication: NON-HODGKIN'S LYMPHOMA
     Dosage: FREQUENCY: DAILYX3Q3WKS
     Route: 042
     Dates: start: 20081020, end: 20090204
  8. GANCICLOVIR [Concomitant]
     Indication: VIRAL INFECTION
     Dosage: DRUG: GANCYCLOVIR
  9. NEUPOGEN [Concomitant]
     Indication: NEUTROPENIA
  10. DARBEPOETIN ALFA [Concomitant]
     Route: 058
     Dates: start: 20090331, end: 20090421
  11. ROCEPHIN [Concomitant]
     Indication: INFECTION
     Route: 042
     Dates: start: 20090331, end: 20090422

REACTIONS (7)
  - CYTOMEGALOVIRUS TEST [None]
  - LOWER RESPIRATORY TRACT INFECTION [None]
  - PANCYTOPENIA [None]
  - PROGRESSIVE MULTIFOCAL LEUKOENCEPHALOPATHY [None]
  - RENAL FAILURE ACUTE [None]
  - RESPIRATORY FAILURE [None]
  - SEPTIC SHOCK [None]
